FAERS Safety Report 8839739 (Version 1)
Quarter: 2012Q4

REPORT INFORMATION
  Report Type: Report from Study
  Country: JP (occurrence: JP)
  Receive Date: 20121015
  Receipt Date: 20121015
  Transmission Date: 20130627
  Serious: Yes (Other)
  Sender: FDA-Public Use
  Company Number: JP-009507513-1210JPN001564

PATIENT
  Age: 50 Year
  Sex: Male
  Weight: 66 kg

DRUGS (3)
  1. PEGINTRON [Suspect]
     Indication: HEPATITIS C
     Dosage: 1.5 Microgram per kilogram, UNK
     Route: 058
     Dates: start: 20120725, end: 20120801
  2. REBETOL [Suspect]
     Indication: HEPATITIS C
     Dosage: 800 mg, UNK
     Route: 048
     Dates: start: 20120725, end: 20120801
  3. TELAVIC [Concomitant]
     Indication: HEPATITIS C
     Dosage: 2250 mg,QD
     Route: 048
     Dates: start: 20120725, end: 20120729

REACTIONS (1)
  - Toxic skin eruption [Recovered/Resolved]
